FAERS Safety Report 8973463 (Version 1)
Quarter: 2012Q4

REPORT INFORMATION
  Report Type: 
  Country: US (occurrence: US)
  Receive Date: 20121218
  Receipt Date: 20121218
  Transmission Date: 20130627
  Serious: No
  Sender: FDA-Public Use
  Company Number: US-BRISTOL-MYERS SQUIBB COMPANY-16808958

PATIENT
  Age: 62 Year
  Sex: Female
  Weight: 73.92 kg

DRUGS (1)
  1. ABILIFY [Suspect]
     Indication: AFFECTIVE DISORDER
     Dosage: Initial dose: 10mg

REACTIONS (1)
  - Tremor [Not Recovered/Not Resolved]
